FAERS Safety Report 14653414 (Version 1)
Quarter: 2018Q1

REPORT INFORMATION
  Report Type: Spontaneous
  Country: US (occurrence: US)
  Receive Date: 20180316
  Receipt Date: 20180316
  Transmission Date: 20180509
  Serious: Yes (Other)
  Sender: FDA-Public Use
  Company Number: None

PATIENT
  Age: 49 Year
  Sex: Female
  Weight: 63 kg

DRUGS (3)
  1. BUPROPION HYDROCHLORIDE XL [Suspect]
     Active Substance: BUPROPION HYDROCHLORIDE
     Indication: DEPRESSION
     Dosage: QUANTITY:2 TABLET(S);OTHER FREQUENCY:TAKEN TOGETHER;?
     Route: 048
     Dates: start: 20180201, end: 20180315
  2. VENLAFAXINE ER [Concomitant]
     Active Substance: VENLAFAXINE HYDROCHLORIDE
  3. ADDERALL [Concomitant]
     Active Substance: AMPHETAMINE ASPARTATE\AMPHETAMINE SULFATE\DEXTROAMPHETAMINE SACCHARATE\DEXTROAMPHETAMINE SULFATE

REACTIONS (7)
  - Depression [None]
  - Anxiety [None]
  - Product substitution issue [None]
  - Panic reaction [None]
  - Decreased activity [None]
  - Hypoacusis [None]
  - Tinnitus [None]

NARRATIVE: CASE EVENT DATE: 20180301
